FAERS Safety Report 16938686 (Version 1)
Quarter: 2019Q4

REPORT INFORMATION
  Report Type: Spontaneous
  Country: US (occurrence: US)
  Receive Date: 20190828
  Receipt Date: 20190828
  Transmission Date: 20200122
  Serious: No
  Sender: FDA-Public Use
  Company Number: None

PATIENT

DRUGS (9)
  1. XANAX [Concomitant]
     Active Substance: ALPRAZOLAM
  2. ANASTROZOLE. [Concomitant]
     Active Substance: ANASTROZOLE
  3. LETROZOLE 2.5 [Suspect]
     Active Substance: LETROZOLE
     Indication: BREAST CANCER
     Route: 048
     Dates: start: 20190726, end: 20190809
  4. METOPROLOL. [Concomitant]
     Active Substance: METOPROLOL
  5. OMEGA-3 ACIDS [Concomitant]
     Active Substance: OMEGA-3 FATTY ACIDS
  6. ALBUTEROL SULFATE. [Concomitant]
     Active Substance: ALBUTEROL SULFATE
  7. LISINOPRIL. [Concomitant]
     Active Substance: LISINOPRIL
  8. VITAMIN D2 [Concomitant]
     Active Substance: ERGOCALCIFEROL
  9. ADVAIR DISKUS [Concomitant]
     Active Substance: FLUTICASONE PROPIONATE\SALMETEROL XINAFOATE

REACTIONS (2)
  - Product supply issue [None]
  - Alopecia [None]

NARRATIVE: CASE EVENT DATE: 20190730
